FAERS Safety Report 11659345 (Version 1)
Quarter: 2015Q4

REPORT INFORMATION
  Report Type: Spontaneous
  Country: US (occurrence: None)
  Receive Date: 20151023
  Receipt Date: 20151023
  Transmission Date: 20160304
  Serious: Yes (Disabling, Other)
  Sender: FDA-Public Use
  Company Number: None

PATIENT
  Age: 71 Year
  Sex: Male
  Weight: 77.11 kg

DRUGS (21)
  1. CHOLESTYRAMINE POWDER [Concomitant]
     Active Substance: CHOLESTYRAMINE
  2. ZANTAC [Concomitant]
     Active Substance: RANITIDINE HYDROCHLORIDE
  3. LISINOPRIL. [Concomitant]
     Active Substance: LISINOPRIL
  4. SUPER B-COMPLEX [Concomitant]
  5. CELEBREX [Concomitant]
     Active Substance: CELECOXIB
  6. AMIODARONE [Suspect]
     Active Substance: AMIODARONE
     Indication: ARRHYTHMIA
     Dosage: TAKEN BY MOUTH
     Route: 048
  7. TOPAMAX [Concomitant]
     Active Substance: TOPIRAMATE
  8. AMIODARONE [Concomitant]
     Active Substance: AMIODARONE
  9. COUMADIN [Concomitant]
     Active Substance: WARFARIN SODIUM
  10. UDAMIN [Concomitant]
  11. INATRAFLEX [Concomitant]
  12. UBIQUINOL [Concomitant]
     Active Substance: UBIQUINOL
  13. AMIODARONE [Suspect]
     Active Substance: AMIODARONE
     Indication: ATRIAL FIBRILLATION
     Dosage: TAKEN BY MOUTH
     Route: 048
  14. NIASPAN [Concomitant]
     Active Substance: NIACIN
  15. CENTRUM [Concomitant]
     Active Substance: VITAMINS
  16. CAL/MAG/ZINC [Concomitant]
  17. VITAMIN C [Concomitant]
     Active Substance: ASCORBIC ACID
  18. OMEGA-3 ACIDS [Concomitant]
     Active Substance: OMEGA-3 FATTY ACIDS
  19. FISH OIL WITH KRILL [Concomitant]
  20. CHROMIUM PICOLINATE [Concomitant]
     Active Substance: CHROMIUM PICOLINATE
  21. VIT. B12 [Concomitant]

REACTIONS (3)
  - Product substitution issue [None]
  - Atrial fibrillation [None]
  - Therapeutic response changed [None]

NARRATIVE: CASE EVENT DATE: 20151021
